FAERS Safety Report 6928673-X (Version None)
Quarter: 2010Q3

REPORT INFORMATION
  Report Type: 
  Country: None (occurrence: None)
  Receive Date: 20100817
  Receipt Date: 20100806
  Transmission Date: 20110219
  Serious: Yes (Hospitalization, Disabling)
  Sender: FDA-Public Use
  Company Number: A0864621A

PATIENT
  Age: 56 Year
  Sex: Female
  Weight: 84.1 kg

DRUGS (9)
  1. AVANDIA [Suspect]
     Indication: DIABETES MELLITUS
     Dosage: 2MG TWICE PER DAY
     Route: 048
     Dates: start: 20030201, end: 20070601
  2. AVANDAMET [Suspect]
     Indication: DIABETES MELLITUS
     Dosage: 1TAB TWICE PER DAY
     Route: 048
     Dates: start: 20040611, end: 20070101
  3. CRESTOR [Concomitant]
  4. ELAVIL [Concomitant]
  5. MICARDIS [Concomitant]
  6. LABETALOL [Concomitant]
  7. PROTONIX [Concomitant]
  8. SINGULAIR [Concomitant]
  9. ZOCOR [Concomitant]

REACTIONS (5)
  - BLINDNESS [None]
  - CEREBRAL ISCHAEMIA [None]
  - CEREBROVASCULAR ACCIDENT [None]
  - CONVULSION [None]
  - TRANSIENT ISCHAEMIC ATTACK [None]
